FAERS Safety Report 8134583-5 (Version None)
Quarter: 2012Q1

REPORT INFORMATION
  Report Type: 
  Country: None (occurrence: None)
  Receive Date: 20120214
  Receipt Date: 20120210
  Transmission Date: 20120608
  Serious: Yes (Death)
  Sender: FDA-Public Use
  Company Number: US-ELI_LILLY_AND_COMPANY-US201202003100

PATIENT
  Age: 21 Year
  Sex: Male

DRUGS (1)
  1. HUMALOG [Suspect]

REACTIONS (1)
  - DEATH [None]
